FAERS Safety Report 19116400 (Version 2)
Quarter: 2021Q2

REPORT INFORMATION
  Report Type: Spontaneous
  Country: GR (occurrence: GR)
  Receive Date: 20210410
  Receipt Date: 20210616
  Transmission Date: 20210717
  Serious: Yes (Other)
  Sender: FDA-Public Use
  Company Number: GR-LUPIN PHARMACEUTICALS INC.-2021-04445

PATIENT
  Age: 34 Year
  Sex: Female

DRUGS (2)
  1. MITROTAN [ERGOMETRINE MALEATE] [Suspect]
     Active Substance: ERGONOVINE MALEATE
     Indication: POSTPARTUM HAEMORRHAGE
     Dosage: UNK
     Route: 042
  2. MISOPROSTOL. [Suspect]
     Active Substance: MISOPROSTOL
     Indication: POSTPARTUM HAEMORRHAGE
     Dosage: UNK
     Route: 054

REACTIONS (1)
  - Drug ineffective [Unknown]
